FAERS Safety Report 23167946 (Version 1)
Quarter: 2023Q4

REPORT INFORMATION
  Report Type: Spontaneous
  Country: FR (occurrence: FR)
  Receive Date: 20231109
  Receipt Date: 20231109
  Transmission Date: 20240109
  Serious: Yes (Other)
  Sender: FDA-Public Use
  Company Number: FR-JAZZ PHARMACEUTICALS-2023-FR-022420

PATIENT

DRUGS (2)
  1. CANNABIDIOL [Suspect]
     Active Substance: CANNABIDIOL
     Indication: Severe myoclonic epilepsy of infancy
     Dosage: UNK
  2. FINTEPLA [Suspect]
     Active Substance: FENFLURAMINE
     Indication: Severe myoclonic epilepsy of infancy
     Dosage: UNK

REACTIONS (1)
  - Fracture [Unknown]
